FAERS Safety Report 7326192-2 (Version None)
Quarter: 2011Q1

REPORT INFORMATION
  Report Type: 
  Country: None (occurrence: None)
  Receive Date: 20110302
  Receipt Date: 20110217
  Transmission Date: 20110831
  Serious: No
  Sender: FDA-Public Use
  Company Number: US-ELI_LILLY_AND_COMPANY-US201102004933

PATIENT
  Sex: Male

DRUGS (1)
  1. CYMBALTA [Suspect]
     Indication: MAJOR DEPRESSION
     Dosage: 60 MG, DAILY (1/D)
     Dates: start: 20100501

REACTIONS (4)
  - BLOOD CHOLESTEROL INCREASED [None]
  - HEPATIC ENZYME ABNORMAL [None]
  - WEIGHT INCREASED [None]
  - SLEEP DISORDER [None]
